FAERS Safety Report 6712173-6 (Version None)
Quarter: 2010Q2

REPORT INFORMATION
  Report Type: 
  Country: None (occurrence: None)
  Receive Date: 20100505
  Receipt Date: 20100430
  Transmission Date: 20101027
  Serious: Yes (Death, Other)
  Sender: FDA-Public Use
  Company Number: US-CELGENEUS-163-21880-10030781

PATIENT
  Sex: Female

DRUGS (1)
  1. REVLIMID [Suspect]
     Indication: MYELODYSPLASTIC SYNDROME
     Route: 048
     Dates: start: 20091201, end: 20100101

REACTIONS (5)
  - BLOOD COUNT ABNORMAL [None]
  - CEREBRAL HAEMORRHAGE [None]
  - FALL [None]
  - NEOPLASM PROGRESSION [None]
  - SEPSIS SYNDROME [None]
